FAERS Safety Report 8541414-8 (Version None)
Quarter: 2012Q3

REPORT INFORMATION
  Report Type: 
  Country: None (occurrence: None)
  Receive Date: 20120726
  Receipt Date: 20120716
  Transmission Date: 20120928
  Serious: Yes (Hospitalization)
  Sender: FDA-Public Use
  Company Number: US-ELI_LILLY_AND_COMPANY-US201010005842

PATIENT
  Sex: Female

DRUGS (6)
  1. FORTEO [Suspect]
     Dosage: 20 UG, QD
     Route: 065
  2. FORTEO [Suspect]
     Dosage: 20 UG, QD
  3. FORTEO [Suspect]
     Dosage: 20 UG, DAILY (1/D)
     Route: 065
  4. FORTEO [Suspect]
     Indication: OSTEOPOROSIS
     Dosage: 20 UG, DAILY (1/D)
     Route: 065
     Dates: start: 20101006
  5. FORTEO [Suspect]
     Dosage: 20 UG, QD
     Route: 065
  6. PREDNISONE [Concomitant]

REACTIONS (10)
  - SPINAL COLUMN STENOSIS [None]
  - INJURY ASSOCIATED WITH DEVICE [None]
  - MEDICATION ERROR [None]
  - INJECTION SITE HAEMATOMA [None]
  - PAIN [None]
  - NERVE INJURY [None]
  - BACK PAIN [None]
  - INJECTION SITE HAEMORRHAGE [None]
  - SPONDYLOLISTHESIS [None]
  - INJECTION SITE MASS [None]
